FAERS Safety Report 21280167 (Version 1)
Quarter: 2022Q3

REPORT INFORMATION
  Report Type: Report from Study
  Country: MX (occurrence: None)
  Receive Date: 20220901
  Receipt Date: 20220901
  Transmission Date: 20221027
  Serious: Yes (Hospitalization)
  Sender: FDA-Public Use
  Company Number: MX-Merck Healthcare KGaA-9339074

PATIENT
  Sex: Female

DRUGS (1)
  1. SAIZEN [Suspect]
     Active Substance: SOMATROPIN
     Indication: Growth hormone deficiency
     Route: 058
     Dates: start: 20210329

REACTIONS (4)
  - Oropharyngeal discomfort [Not Recovered/Not Resolved]
  - Tonsillitis [Not Recovered/Not Resolved]
  - Snoring [Not Recovered/Not Resolved]
  - Drug ineffective [Not Recovered/Not Resolved]
